FAERS Safety Report 13292880 (Version 1)
Quarter: 2017Q1

REPORT INFORMATION
  Report Type: Spontaneous
  Country: US (occurrence: US)
  Receive Date: 20170303
  Receipt Date: 20170303
  Transmission Date: 20170428
  Serious: No
  Sender: FDA-Public Use
  Company Number: US-009507513-1702CAN010477

PATIENT

DRUGS (1)
  1. ZEPATIER [Suspect]
     Active Substance: ELBASVIR\GRAZOPREVIR
     Indication: HEPATITIS C
     Dosage: TOTAL DAILY DOSE: 50-100 MG; 1 TABLET BY MOUTH EVERYDAY
     Route: 048
     Dates: start: 20170216, end: 201702

REACTIONS (2)
  - Drug dose omission [Unknown]
  - Headache [Unknown]
